FAERS Safety Report 12628139 (Version 3)
Quarter: 2016Q4

REPORT INFORMATION
  Report Type: Spontaneous
  Country: US (occurrence: US)
  Receive Date: 20160808
  Receipt Date: 20161216
  Transmission Date: 20170207
  Serious: Yes (Other)
  Sender: FDA-Public Use
  Company Number: PHHY2016US108235

PATIENT
  Sex: Female
  Weight: 52.15 kg

DRUGS (1)
  1. ZOFRAN [Suspect]
     Active Substance: ONDANSETRON HYDROCHLORIDE
     Indication: VOMITING IN PREGNANCY
     Dosage: 4 MG, UNK
     Route: 065
     Dates: start: 19981115, end: 19981215

REACTIONS (10)
  - Maternal exposure during pregnancy [Unknown]
  - Vaginal haemorrhage [Unknown]
  - Onychomycosis [Unknown]
  - Cholecystitis chronic [Unknown]
  - Ecchymosis [Unknown]
  - Plantar fasciitis [Unknown]
  - Product use issue [Unknown]
  - Cholelithiasis [Unknown]
  - Uterine hypertonus [Unknown]
  - Gallbladder cholesterolosis [Unknown]
